FAERS Safety Report 14571754 (Version 1)
Quarter: 2018Q1

REPORT INFORMATION
  Report Type: Spontaneous
  Country: US (occurrence: US)
  Receive Date: 20180223
  Receipt Date: 20180223
  Transmission Date: 20180509
  Serious: Yes (Hospitalization)
  Sender: FDA-Public Use
  Company Number: None

PATIENT
  Sex: Male

DRUGS (4)
  1. NEUPOGEN [Suspect]
     Active Substance: FILGRASTIM
     Indication: SPINAL MENINGIOMA MALIGNANT
     Dosage: 0.8 ML QD FOR 7/28 DAYS SUBCUTANEOUS
     Route: 058
     Dates: start: 20180202
  2. CIPROFLOXACIN. [Concomitant]
     Active Substance: CIPROFLOXACIN
  3. ALLOPURINOL. [Concomitant]
     Active Substance: ALLOPURINOL
  4. COLACE [Concomitant]
     Active Substance: DOCUSATE SODIUM

REACTIONS (1)
  - White blood cell count decreased [None]
